FAERS Safety Report 4844833-6 (Version None)
Quarter: 2005Q4

REPORT INFORMATION
  Report Type: 
  Country: None (occurrence: None)
  Receive Date: 20051205
  Receipt Date: 20051124
  Transmission Date: 20060501
  Serious: Yes (Life-Threatening, Hospitalization)
  Sender: FDA-Public Use
  Company Number: JP-JNJFOC-20051000905

PATIENT
  Sex: Female

DRUGS (1)
  1. ITRIZOLE [Suspect]
     Route: 048
     Dates: start: 20050926

REACTIONS (4)
  - PYREXIA [None]
  - RESPIRATORY DISTRESS [None]
  - SWELLING FACE [None]
  - URTICARIA GENERALISED [None]
